FAERS Safety Report 16188702 (Version 1)
Quarter: 2019Q2

REPORT INFORMATION
  Report Type: Spontaneous
  Country: GB (occurrence: GB)
  Receive Date: 20190412
  Receipt Date: 20190412
  Transmission Date: 20190711
  Serious: Yes (Hospitalization)
  Sender: FDA-Public Use
  Company Number: GB-BRISTOL-MYERS SQUIBB COMPANY-BMS-2019-035038

PATIENT
  Age: 60 Year
  Sex: Male
  Weight: 131 kg

DRUGS (1)
  1. APIXABAN [Suspect]
     Active Substance: APIXABAN
     Indication: CEREBROVASCULAR ACCIDENT PROPHYLAXIS
     Dosage: 10 MILLIGRAM
     Route: 048
     Dates: start: 20190312, end: 20190320

REACTIONS (2)
  - Tendonitis [Not Recovered/Not Resolved]
  - Plantar fasciitis [Not Recovered/Not Resolved]

NARRATIVE: CASE EVENT DATE: 20190320
